FAERS Safety Report 17577970 (Version 6)
Quarter: 2020Q4

REPORT INFORMATION
  Report Type: Spontaneous
  Country: US (occurrence: US)
  Receive Date: 20200324
  Receipt Date: 20201221
  Transmission Date: 20210113
  Serious: Yes (Other)
  Sender: FDA-Public Use
  Company Number: US-GILEAD-2020-0455828

PATIENT
  Age: 37 Year
  Sex: Female
  Weight: 53.52 kg

DRUGS (19)
  1. COMPLERA [Suspect]
     Active Substance: EMTRICITABINE\RILPIVIRINE HYDROCHLORIDE\TENOFOVIR DISOPROXIL FUMARATE
     Indication: HIV INFECTION
     Dosage: UNK
     Route: 048
     Dates: start: 2011, end: 2019
  2. BACTRIM [Concomitant]
     Active Substance: SULFAMETHOXAZOLE\TRIMETHOPRIM
  3. COMPLERA [Suspect]
     Active Substance: EMTRICITABINE\RILPIVIRINE HYDROCHLORIDE\TENOFOVIR DISOPROXIL FUMARATE
     Dosage: UNK
     Route: 048
     Dates: start: 20151229, end: 20190305
  4. LASIX [Concomitant]
     Active Substance: FUROSEMIDE
  5. JULUCA [Concomitant]
     Active Substance: DOLUTEGRAVIR SODIUM\RILPIVIRINE HYDROCHLORIDE
  6. RETROVIR [Concomitant]
     Active Substance: ZIDOVUDINE
  7. ZOFRAN [Concomitant]
     Active Substance: ONDANSETRON HYDROCHLORIDE
  8. ACETAMINOPHEN. [Concomitant]
     Active Substance: ACETAMINOPHEN
  9. AMBIEN [Concomitant]
     Active Substance: ZOLPIDEM TARTRATE
  10. AMOXICILLIN. [Concomitant]
     Active Substance: AMOXICILLIN
  11. ASPIRIN KENT [ACETYLSALICYLIC ACID] [Concomitant]
  12. VIDEX [Concomitant]
     Active Substance: DIDANOSINE
  13. VANCOMYCIN [Concomitant]
     Active Substance: VANCOMYCIN
  14. LEXAPRO [Concomitant]
     Active Substance: ESCITALOPRAM OXALATE
  15. HEPARIN [Concomitant]
     Active Substance: HEPARIN SODIUM
  16. PREDNISONE. [Concomitant]
     Active Substance: PREDNISONE
  17. BIKTARVY [Concomitant]
     Active Substance: BICTEGRAVIR SODIUM\EMTRICITABINE\TENOFOVIR ALAFENAMIDE FUMARATE
  18. REYATAZ [Concomitant]
     Active Substance: ATAZANAVIR SULFATE
  19. VIRAMUNE [Concomitant]
     Active Substance: NEVIRAPINE

REACTIONS (8)
  - Emotional distress [Unknown]
  - Anaemia [Unknown]
  - Depression [Not Recovered/Not Resolved]
  - Renal failure [Not Recovered/Not Resolved]
  - Pain [Unknown]
  - Chronic kidney disease [Not Recovered/Not Resolved]
  - Anxiety [Not Recovered/Not Resolved]
  - Economic problem [Unknown]

NARRATIVE: CASE EVENT DATE: 201905
